FAERS Safety Report 5141793-8 (Version None)
Quarter: 2006Q4

REPORT INFORMATION
  Report Type: 
  Country: None (occurrence: None)
  Receive Date: 20061027
  Receipt Date: 20061016
  Transmission Date: 20070319
  Serious: Yes (Other)
  Sender: FDA-Public Use
  Company Number: 2006127337

PATIENT
  Age: 77 Year

DRUGS (8)
  1. LYRICA [Suspect]
     Indication: DIABETIC NEUROPATHY
     Dosage: 150 MG (75 MG, 2 IN 1 D)
     Dates: start: 20060713
  2. VALSARTAN [Concomitant]
  3. INSULIN HUMAN (INSULIN HUMAN) [Concomitant]
  4. TAMSULOSIN HYDROCHLORIDE (TAMSULOSIN HYDROCHLORIDE) TAMSULOSIN HYDROCH [Concomitant]
  5. SOTALOL HYDROCHLORIDE (SOTALOL HYDROCHLORIDE) SOTALOL HYDROCHLORIDE (S [Concomitant]
  6. SIMVASTATIN (SIMVASTATIN) SIMVASTATIN (SIMVASTATIN) [Concomitant]
  7. GLIBENCLAMIDE (GLIBENCLAMIDE) GLIBENCLAMIDE (GLIBENCLAMIDE) [Concomitant]
  8. ACARBOSE (ACARBOSE) ACARBOSE (ACARBOSE) [Concomitant]

REACTIONS (1)
  - THROMBOCYTOPENIA [None]
